FAERS Safety Report 13486728 (Version 1)
Quarter: 2017Q2

REPORT INFORMATION
  Report Type: Spontaneous
  Country: FR (occurrence: FR)
  Receive Date: 20170426
  Receipt Date: 20170426
  Transmission Date: 20170830
  Serious: Yes (Life-Threatening, Hospitalization, Other)
  Sender: FDA-Public Use
  Company Number: FR-BAYER-2017-047422

PATIENT
  Age: 66 Year
  Sex: Female
  Weight: 64 kg

DRUGS (5)
  1. ULTRAVIST [Suspect]
     Active Substance: IOPROMIDE
     Indication: COMPUTERISED TOMOGRAM THORAX
  2. ULTRAVIST [Suspect]
     Active Substance: IOPROMIDE
     Indication: COMPUTERISED TOMOGRAM ABDOMEN
     Dosage: 130 ML, ONCE
     Dates: start: 20170303, end: 20170303
  3. ALCOHOL [ISOPROPANOL] [Concomitant]
     Indication: INFECTION PROPHYLAXIS
     Dosage: UNK
     Route: 003
     Dates: start: 20170303
  4. NACL [Concomitant]
     Active Substance: SODIUM CHLORIDE
     Indication: SCAN MYOCARDIAL PERFUSION
     Dosage: 0.9 %, UNK
     Route: 042
     Dates: start: 20170203
  5. ULTRAVIST [Suspect]
     Active Substance: IOPROMIDE
     Indication: COMPUTERISED TOMOGRAM PELVIS

REACTIONS (6)
  - Cardio-respiratory arrest [Recovered/Resolved with Sequelae]
  - Cardiac arrest [Recovering/Resolving]
  - Dyspnoea [Recovering/Resolving]
  - Rib fracture [None]
  - Myocardial infarction [Recovering/Resolving]
  - Pneumothorax [None]

NARRATIVE: CASE EVENT DATE: 20170303
